FAERS Safety Report 5492109-9 (Version None)
Quarter: 2007Q4

REPORT INFORMATION
  Report Type: 
  Country: None (occurrence: None)
  Receive Date: 20071022
  Receipt Date: 20071012
  Transmission Date: 20080405
  Serious: Yes (Hospitalization)
  Sender: FDA-Public Use
  Company Number: FR-BRISTOL-MYERS SQUIBB COMPANY-13948765

PATIENT
  Age: 43 Year
  Sex: Male

DRUGS (5)
  1. ENDOXAN [Suspect]
     Indication: WEGENER'S GRANULOMATOSIS
     Route: 042
     Dates: start: 20070630, end: 20070730
  2. ZYLORIC [Suspect]
     Indication: ARTHRALGIA
     Route: 048
     Dates: start: 20070710, end: 20070905
  3. ZYLORIC [Suspect]
     Indication: HYPERURICAEMIA
     Route: 048
     Dates: start: 20070710, end: 20070905
  4. CELLCEPT [Concomitant]
     Indication: WEGENER'S GRANULOMATOSIS
  5. CORTICOSTEROID [Concomitant]

REACTIONS (2)
  - BONE MARROW FAILURE [None]
  - NEUTROPENIA [None]
